FAERS Safety Report 17204766 (Version 1)
Quarter: 2019Q4

REPORT INFORMATION
  Report Type: Report from Study
  Country: None (occurrence: US)
  Receive Date: 20191226
  Receipt Date: 20191226
  Transmission Date: 20200122
  Serious: Yes (Other)
  Sender: FDA-Public Use
  Company Number: US-ABBVIE-19K-163-3201959-00

PATIENT
  Sex: Male
  Weight: 129.39 kg

DRUGS (7)
  1. JAKAFI [Concomitant]
     Active Substance: RUXOLITINIB
     Indication: GRAFT VERSUS HOST DISEASE
  2. VENCLEXTA [Suspect]
     Active Substance: VENETOCLAX
     Indication: HAEMOLYTIC ANAEMIA ENZYME SPECIFIC
  3. VENCLEXTA [Suspect]
     Active Substance: VENETOCLAX
     Indication: ACUTE MYELOID LEUKAEMIA
     Route: 048
     Dates: start: 2019, end: 2019
  4. VENCLEXTA [Suspect]
     Active Substance: VENETOCLAX
     Indication: ACUTE LYMPHOCYTIC LEUKAEMIA
  5. VENCLEXTA [Suspect]
     Active Substance: VENETOCLAX
     Indication: THROMBOCYTOPENIA
  6. TACROLIMUS. [Concomitant]
     Active Substance: TACROLIMUS
     Indication: PRODUCT USED FOR UNKNOWN INDICATION
  7. MAGNESIUM [Concomitant]
     Active Substance: MAGNESIUM
     Indication: PRODUCT USED FOR UNKNOWN INDICATION

REACTIONS (5)
  - Liver function test decreased [Unknown]
  - Transplant [Unknown]
  - Post procedural complication [Unknown]
  - Off label use [Unknown]
  - Graft versus host disease [Not Recovered/Not Resolved]

NARRATIVE: CASE EVENT DATE: 2019
